FAERS Safety Report 4958197-0 (Version None)
Quarter: 2006Q1

REPORT INFORMATION
  Report Type: 
  Country: None (occurrence: None)
  Receive Date: 20060330
  Receipt Date: 20060104
  Transmission Date: 20060701
  Serious: Yes (Hospitalization)
  Sender: FDA-Public Use
  Company Number: PHEH2006US00639

PATIENT
  Age: 4 Year
  Sex: Male
  Weight: 18.5 kg

DRUGS (1)
  1. TRILEPTAL [Suspect]
     Indication: CONVULSION
     Dosage: 1 ML, ONCE/SINGLE
     Route: 048
     Dates: start: 20051229, end: 20051229

REACTIONS (14)
  - ANAPHYLACTIC REACTION [None]
  - ATELECTASIS [None]
  - CHEST X-RAY ABNORMAL [None]
  - COUGH [None]
  - CYANOSIS [None]
  - DROOLING [None]
  - DYSPNOEA [None]
  - INFLAMMATION [None]
  - LARYNGEAL OEDEMA [None]
  - STRIDOR [None]
  - SWELLING FACE [None]
  - TONSILLAR DISORDER [None]
  - WHITE BLOOD CELL COUNT INCREASED [None]
  - X-RAY ABNORMAL [None]
